FAERS Safety Report 9643900 (Version 2)
Quarter: 2016Q1

REPORT INFORMATION
  Report Type: Spontaneous
  Country: CA (occurrence: CA)
  Receive Date: 20131024
  Receipt Date: 20160119
  Transmission Date: 20160526
  Serious: Yes (Life-Threatening, Other)
  Sender: FDA-Public Use
  Company Number: CA-ABBVIE-13P-028-1161222-00

PATIENT
  Age: 52 Year
  Sex: Female
  Weight: 54.93 kg

DRUGS (2)
  1. SYNTHROID [Suspect]
     Active Substance: LEVOTHYROXINE SODIUM
     Indication: HYPOTHYROIDISM
     Route: 048
     Dates: start: 20020501, end: 20130528
  2. VITAMIN B COMPLEX [Concomitant]
     Active Substance: CYANOCOBALAMIN\DEXPANTHENOL\NIACINAMIDE\PYRIDOXINE HYDROCHLORIDE\RIBOFLAVIN 5^-PHOSPHATE SODIUM\THIAMINE HYDROCHLORIDE\VITAMIN B COMPLEX
     Indication: CARDIAC DISORDER

REACTIONS (23)
  - Chest pain [Recovered/Resolved]
  - Dizziness [Recovered/Resolved]
  - Decreased appetite [Recovering/Resolving]
  - Pollakiuria [Recovering/Resolving]
  - Dysuria [Recovering/Resolving]
  - Facial spasm [Unknown]
  - Dyspnoea [Recovered/Resolved]
  - Anxiety [Recovering/Resolving]
  - Blood thyroid stimulating hormone increased [Recovered/Resolved]
  - Hypertension [Recovering/Resolving]
  - Paranoia [Recovering/Resolving]
  - Tinnitus [Recovering/Resolving]
  - Deafness [Recovering/Resolving]
  - Panic reaction [Recovering/Resolving]
  - Visual impairment [Unknown]
  - Neck pain [Unknown]
  - Feeling abnormal [Recovering/Resolving]
  - Myalgia [Unknown]
  - Arrhythmia [Recovering/Resolving]
  - Dysphagia [Recovering/Resolving]
  - Headache [Recovering/Resolving]
  - Amnesia [Recovering/Resolving]
  - Muscle spasms [Unknown]

NARRATIVE: CASE EVENT DATE: 201207
